FAERS Safety Report 14171532 (Version 2)
Quarter: 2017Q4

REPORT INFORMATION
  Report Type: Spontaneous
  Country: US (occurrence: US)
  Receive Date: 20171108
  Receipt Date: 20171215
  Transmission Date: 20180321
  Serious: Yes (Hospitalization, Other)
  Sender: FDA-Public Use
  Company Number: US-SA-2017SA218089

PATIENT
  Age: 25 Year
  Sex: Female
  Weight: 37 kg

DRUGS (1)
  1. CEREZYME [Suspect]
     Active Substance: IMIGLUCERASE
     Indication: GAUCHER^S DISEASE
     Dosage: DOSE:81.08 UNIT(S)/KILOGRAM BODYWEIGHT
     Route: 041
     Dates: start: 1995

REACTIONS (12)
  - Dyspnoea [Unknown]
  - Cardiac failure [Not Recovered/Not Resolved]
  - Dyspnoea [Not Recovered/Not Resolved]
  - Tachypnoea [Not Recovered/Not Resolved]
  - Mitral valve incompetence [Unknown]
  - Pneumonia [Unknown]
  - Hypotension [Not Recovered/Not Resolved]
  - Pleural effusion [Unknown]
  - Angiopathy [Unknown]
  - Cardiac arrest [Unknown]
  - Spleen disorder [Unknown]
  - Fatigue [Unknown]

NARRATIVE: CASE EVENT DATE: 200803
